FAERS Safety Report 13269124 (Version 2)
Quarter: 2017Q2

REPORT INFORMATION
  Report Type: Spontaneous
  Country: JP (occurrence: JP)
  Receive Date: 20170224
  Receipt Date: 20170629
  Transmission Date: 20170830
  Serious: Yes (Hospitalization)
  Sender: FDA-Public Use
  Company Number: JP-LANNETT COMPANY, INC.-JP-2017LAN000588

PATIENT
  Age: 77 Year
  Sex: Male
  Weight: 47.6 kg

DRUGS (4)
  1. RIFAMPIN. [Suspect]
     Active Substance: RIFAMPIN
     Indication: TUBERCULOSIS
     Dosage: 450 MG, QD
  2. ETHAMBUTOL [Suspect]
     Active Substance: ETHAMBUTOL HYDROCHLORIDE
     Indication: TUBERCULOSIS
     Dosage: 750 MG, QD
  3. ISONIAZID. [Suspect]
     Active Substance: ISONIAZID
     Indication: TUBERCULOSIS
     Dosage: 300 MG, QD
  4. PYRAZINAMIDE. [Suspect]
     Active Substance: PYRAZINAMIDE
     Indication: TUBERCULOSIS
     Dosage: 1.2 G, QD

REACTIONS (4)
  - Pyrexia [Unknown]
  - Blood creatinine increased [Unknown]
  - Ureteric stenosis [Recovering/Resolving]
  - Anuria [Unknown]
